FAERS Safety Report 15351540 (Version 1)
Quarter: 2018Q3

REPORT INFORMATION
  Report Type: Spontaneous
  Country: US (occurrence: US)
  Receive Date: 20180905
  Receipt Date: 20180905
  Transmission Date: 20181010
  Serious: Yes (Other)
  Sender: FDA-Public Use
  Company Number: US-BAYER-2018-160502

PATIENT
  Age: 30 Year
  Sex: Female

DRUGS (1)
  1. MIRENA [Suspect]
     Active Substance: LEVONORGESTREL
     Indication: CONTRACEPTION
     Dosage: 20 MCG/24HR, CONT
     Route: 015
     Dates: start: 201607

REACTIONS (17)
  - Autoimmune disorder [None]
  - Abdominal pain lower [None]
  - Abdominal distension [None]
  - Complication of device removal [None]
  - Procedural haemorrhage [None]
  - Device difficult to use [None]
  - Migraine [None]
  - Urinary retention [None]
  - Device issue [None]
  - Syncope [None]
  - Myocardial infarction [None]
  - Medical device discomfort [None]
  - Fatigue [None]
  - Dysmenorrhoea [None]
  - Procedural pain [Recovered/Resolved]
  - Dizziness [None]
  - Hypomenorrhoea [None]

NARRATIVE: CASE EVENT DATE: 201607
